FAERS Safety Report 10966706 (Version 1)
Quarter: 2015Q1

REPORT INFORMATION
  Report Type: Spontaneous
  Country: ES (occurrence: ES)
  Receive Date: 20150330
  Receipt Date: 20150330
  Transmission Date: 20150721
  Serious: Yes (Other)
  Sender: FDA-Public Use
  Company Number: ES-WATSON-2015-06823

PATIENT
  Age: 69 Year

DRUGS (1)
  1. RAPAFLO [Suspect]
     Active Substance: SILODOSIN
     Indication: PROSTATISM
     Dosage: 8 MG, UNK
     Route: 048
     Dates: start: 20130828, end: 20150107

REACTIONS (2)
  - Eczema [Recovered/Resolved]
  - Visual acuity reduced [Recovered/Resolved]

NARRATIVE: CASE EVENT DATE: 2013
